FAERS Safety Report 7291541-0 (Version None)
Quarter: 2011Q1

REPORT INFORMATION
  Report Type: 
  Country: None (occurrence: None)
  Receive Date: 20110214
  Receipt Date: 20110131
  Transmission Date: 20110831
  Serious: Yes (Hospitalization)
  Sender: FDA-Public Use
  Company Number: JP-CELGENEUS-087-21880-11020007

PATIENT
  Sex: Male

DRUGS (29)
  1. REVLIMID [Suspect]
     Route: 048
     Dates: start: 20101118, end: 20101208
  2. LENADEX [Suspect]
     Route: 048
     Dates: start: 20101014, end: 20101025
  3. MAGNESIUM OXIDE [Concomitant]
     Route: 048
     Dates: start: 20100919, end: 20101215
  4. BLADDERON [Concomitant]
     Route: 048
     Dates: start: 20101030, end: 20101111
  5. RIZE [Concomitant]
     Route: 048
     Dates: start: 20100909, end: 20101030
  6. REVLIMID [Suspect]
     Route: 048
     Dates: start: 20100922, end: 20101006
  7. LENADEX [Suspect]
     Indication: MULTIPLE MYELOMA
     Route: 048
     Dates: start: 20100909, end: 20100925
  8. PURSENNID [Concomitant]
     Route: 048
     Dates: start: 20100909, end: 20101215
  9. ZOVIRAX [Concomitant]
     Indication: PROPHYLAXIS
     Route: 048
     Dates: start: 20090701, end: 20101215
  10. MYSLEE [Concomitant]
     Route: 048
     Dates: start: 20100909, end: 20101030
  11. ZOMETA [Concomitant]
     Route: 041
     Dates: start: 20101013, end: 20101013
  12. AMLODIPINE [Concomitant]
     Route: 048
     Dates: start: 20100909, end: 20101215
  13. OXYCONTIN [Concomitant]
     Indication: BONE PAIN
     Route: 048
     Dates: start: 20100919, end: 20101209
  14. LEFTOSE [Concomitant]
     Route: 048
     Dates: start: 20100909, end: 20101104
  15. MARZULENE-S [Concomitant]
     Indication: PROPHYLAXIS
     Route: 048
     Dates: start: 20100908, end: 20101201
  16. LENADEX [Suspect]
     Route: 048
     Dates: start: 20101118, end: 20101129
  17. HYPEN [Concomitant]
     Route: 048
     Dates: start: 20100907, end: 20101215
  18. OXINORM [Concomitant]
     Route: 048
     Dates: start: 20100920, end: 20101013
  19. NOVAMIN [Concomitant]
     Indication: PROPHYLAXIS
     Route: 048
     Dates: start: 20100919, end: 20101215
  20. ASPIRIN [Concomitant]
     Indication: PROPHYLAXIS
     Route: 048
     Dates: start: 20100909, end: 20101215
  21. MUCODYNE [Concomitant]
     Route: 048
     Dates: start: 20100909, end: 20101215
  22. GASTER D [Concomitant]
     Indication: PROPHYLAXIS
     Route: 048
     Dates: start: 20100909, end: 20101215
  23. REVLIMID [Suspect]
     Indication: MULTIPLE MYELOMA
     Route: 048
     Dates: start: 20100909, end: 20100914
  24. REVLIMID [Suspect]
     Route: 048
     Dates: start: 20101014, end: 20101103
  25. ERYTHROCIN LACTOBIONATE [Concomitant]
     Route: 048
     Dates: start: 20100909, end: 20101215
  26. METHYCOBAL [Concomitant]
     Route: 048
     Dates: start: 20091001, end: 20101201
  27. ARRESTEN [Concomitant]
     Route: 048
     Dates: start: 20100909, end: 20101215
  28. URIEF [Concomitant]
     Route: 048
     Dates: start: 20100909, end: 20101030
  29. LEPETAN [Concomitant]
     Route: 030
     Dates: start: 20100919, end: 20100919

REACTIONS (6)
  - ANXIETY [None]
  - MALAISE [None]
  - DYSAESTHESIA [None]
  - MYALGIA [None]
  - BONE PAIN [None]
  - NEUTROPENIA [None]
